APPROVED DRUG PRODUCT: PREGABALIN
Active Ingredient: PREGABALIN
Strength: 75MG
Dosage Form/Route: CAPSULE;ORAL
Application: A212280 | Product #003
Applicant: CIPLA LTD
Approved: Jan 10, 2020 | RLD: No | RS: No | Type: DISCN